FAERS Safety Report 5249977-5 (Version None)
Quarter: 2007Q1

REPORT INFORMATION
  Report Type: 
  Country: None (occurrence: None)
  Receive Date: 20070228
  Receipt Date: 20060126
  Transmission Date: 20070707
  Serious: No
  Sender: FDA-Public Use
  Company Number: US-GLAXOSMITHKLINE-A0589412A

PATIENT
  Age: 23 Year
  Sex: Female
  Weight: 50 kg

DRUGS (4)
  1. LAMICTAL [Suspect]
     Indication: BIPOLAR DISORDER
     Dosage: 25MG PER DAY
     Route: 048
     Dates: start: 20060110
  2. TOPAMAX [Concomitant]
  3. PAXIL [Concomitant]
     Route: 048
  4. OVCON-35 [Concomitant]

REACTIONS (1)
  - METRORRHAGIA [None]
